FAERS Safety Report 12447607 (Version 1)
Quarter: 2016Q2

REPORT INFORMATION
  Report Type: Spontaneous
  Country: US (occurrence: None)
  Receive Date: 20160607
  Receipt Date: 20160607
  Transmission Date: 20160815
  Serious: Yes (Hospitalization)
  Sender: FDA-Public Use
  Company Number: None

PATIENT
  Age: 48 Year
  Sex: Male

DRUGS (1)
  1. RITUXAN [Suspect]
     Active Substance: RITUXIMAB
     Indication: INVESTIGATION
     Dosage: 1000MG IVPB
     Route: 042
     Dates: start: 20150225

REACTIONS (2)
  - Transplant rejection [None]
  - Blood creatinine increased [None]

NARRATIVE: CASE EVENT DATE: 20160527
